FAERS Safety Report 25801864 (Version 2)
Quarter: 2025Q4

REPORT INFORMATION
  Report Type: Spontaneous
  Country: BR (occurrence: BR)
  Receive Date: 20250915
  Receipt Date: 20251006
  Transmission Date: 20260117
  Serious: Yes (Hospitalization, Other)
  Sender: BAYER HEALTHCARE PHARMACEUTICALS INC.
  Company Number: BR-BAYER-2025A118516

PATIENT
  Age: 44 Year
  Sex: Female
  Weight: 52 kg

DRUGS (2)
  1. GADOBUTROL [Suspect]
     Active Substance: GADOBUTROL
     Indication: Magnetic resonance imaging
     Dosage: 5 ML, ONCE
     Route: 042
     Dates: start: 20250625, end: 20250625
  2. GADOBUTROL [Suspect]
     Active Substance: GADOBUTROL
     Indication: Back pain

REACTIONS (4)
  - Dysphonia [None]
  - Pruritus [None]
  - Pruritus [None]
  - Hyperaemia [None]

NARRATIVE: CASE EVENT DATE: 20250625
